FAERS Safety Report 7501096-0 (Version None)
Quarter: 2011Q2

REPORT INFORMATION
  Report Type: 
  Country: None (occurrence: None)
  Receive Date: 20110524
  Receipt Date: 20110516
  Transmission Date: 20111010
  Serious: Yes (Hospitalization, Congenital Anomaly, Other)
  Sender: FDA-Public Use
  Company Number: US-PFIZER INC-2011105532

PATIENT
  Sex: Male
  Weight: 3 kg

DRUGS (6)
  1. ZOLOFT [Suspect]
     Indication: DEPRESSION
     Dosage: UNK
  2. ZOLOFT [Suspect]
     Indication: CONVULSION
  3. LAMICTAL [Concomitant]
     Indication: CONVULSION
     Dosage: UNK
  4. FOLATE [Concomitant]
     Dosage: UNK
  5. IRON [Concomitant]
     Dosage: UNK
  6. KEPPRA [Concomitant]
     Indication: CONVULSION
     Dosage: UNK

REACTIONS (27)
  - RESPIRATORY DISORDER [None]
  - EAR CONGESTION [None]
  - SKIN DISCOLOURATION [None]
  - JAUNDICE [None]
  - RESPIRATORY DISTRESS [None]
  - PAPULE [None]
  - PYREXIA [None]
  - FAILURE TO THRIVE [None]
  - TACHYPNOEA [None]
  - DIARRHOEA [None]
  - HEART DISEASE CONGENITAL [None]
  - AUTONOMIC NERVOUS SYSTEM IMBALANCE [None]
  - UPPER RESPIRATORY TRACT INFECTION [None]
  - ATRIAL SEPTAL DEFECT [None]
  - COUGH [None]
  - DRUG EXPOSURE DURING PREGNANCY [None]
  - HYPOXIA [None]
  - MOTOR DEVELOPMENTAL DELAY [None]
  - INSOMNIA [None]
  - ROAD TRAFFIC ACCIDENT [None]
  - IRRITABILITY [None]
  - AMMONIA INCREASED [None]
  - CONSTIPATION [None]
  - CRYING [None]
  - CYANOSIS [None]
  - LIVEDO RETICULARIS [None]
  - RHINORRHOEA [None]
